FAERS Safety Report 9703277 (Version 2)
Quarter: 2013Q4

REPORT INFORMATION
  Report Type: Report from Study
  Country: CA (occurrence: CA)
  Receive Date: 20131122
  Receipt Date: 20131122
  Transmission Date: 20140711
  Serious: Yes (Other)
  Sender: FDA-Public Use
  Company Number: CA-ROCHE-1112220

PATIENT
  Age: 78 Year
  Sex: Female

DRUGS (10)
  1. RITUXAN [Suspect]
     Indication: RHEUMATOID ARTHRITIS
     Route: 042
     Dates: start: 20080318
  2. RITUXAN [Suspect]
     Route: 042
     Dates: start: 20120821
  3. CORTISONE [Concomitant]
  4. MOBICOX [Concomitant]
  5. TYLENOL [Concomitant]
  6. SYNTHROID [Concomitant]
  7. COVERSYL [Concomitant]
  8. DIPHENHYDRAMINE HCL [Concomitant]
     Indication: PREMEDICATION
     Route: 048
     Dates: start: 20120821, end: 20120821
  9. ACETAMINOPHEN [Concomitant]
     Indication: PREMEDICATION
     Route: 048
     Dates: start: 20120821, end: 20120821
  10. METHYLPREDNISOLONE [Concomitant]
     Indication: PREMEDICATION
     Route: 042
     Dates: start: 20120821, end: 20120821

REACTIONS (3)
  - Oedema peripheral [Unknown]
  - Synovitis [Unknown]
  - Toothache [Not Recovered/Not Resolved]
